FAERS Safety Report 16014959 (Version 1)
Quarter: 2019Q1

REPORT INFORMATION
  Report Type: Spontaneous
  Country: US (occurrence: US)
  Receive Date: 20190227
  Receipt Date: 20190227
  Transmission Date: 20190418
  Serious: No
  Sender: FDA-Public Use
  Company Number: US-ASTRAZENECA-2019SE19871

PATIENT
  Sex: Female
  Weight: 99.8 kg

DRUGS (9)
  1. AZITHROMYCIN ANHYDROUS. [Concomitant]
     Active Substance: AZITHROMYCIN ANHYDROUS
     Route: 048
  2. MUCINEX [Concomitant]
     Active Substance: GUAIFENESIN
     Dosage: TWO TIMES A DAY
     Route: 048
  3. PULMICORT RESPULES [Suspect]
     Active Substance: BUDESONIDE
     Indication: BRONCHITIS
     Dosage: PULMICORT RESPULES 0.5MG-2ML ONCE IN MORNING AND ONCE AT NIGHT VIA PARI NEBUILIZER
     Route: 055
  4. DOXICYCLINE [Concomitant]
     Indication: MALAISE
     Route: 065
  5. ALBUTEROL. [Concomitant]
     Active Substance: ALBUTEROL
     Route: 065
  6. SODIUM CHLORIDE. [Concomitant]
     Active Substance: SODIUM CHLORIDE
     Route: 065
  7. PULMICORT RESPULES [Suspect]
     Active Substance: BUDESONIDE
     Indication: ASTHMA
     Dosage: PULMICORT RESPULES 0.5MG-2ML ONCE IN MORNING AND ONCE AT NIGHT VIA PARI NEBUILIZER
     Route: 055
  8. PULMICORT RESPULES [Suspect]
     Active Substance: BUDESONIDE
     Indication: BRONCHIECTASIS
     Dosage: PULMICORT RESPULES 0.5MG-2ML ONCE IN MORNING AND ONCE AT NIGHT VIA PARI NEBUILIZER
     Route: 055
  9. DUONEB [Concomitant]
     Active Substance: ALBUTEROL SULFATE\IPRATROPIUM BROMIDE
     Route: 065

REACTIONS (5)
  - Off label use [Unknown]
  - Lung disorder [Unknown]
  - Malaise [Unknown]
  - Product use in unapproved indication [Unknown]
  - Product use issue [Unknown]
